FAERS Safety Report 4332699-2 (Version None)
Quarter: 2004Q1

REPORT INFORMATION
  Report Type: 
  Country: None (occurrence: None)
  Receive Date: 20040330
  Receipt Date: 20040316
  Transmission Date: 20041129
  Serious: Yes (Hospitalization)
  Sender: FDA-Public Use
  Company Number: 2004CG00540

PATIENT
  Age: 26 Day
  Sex: Male

DRUGS (5)
  1. AVLOCARDYL [Suspect]
     Dosage: 2 MG/KG DAILY PO
     Route: 048
     Dates: start: 20040121, end: 20040211
  2. TENORMIN [Suspect]
     Dosage: 25 MG BID TP
     Route: 064
  3. NEO-MERCAZOLE TAB [Suspect]
     Dosage: 1 MG Q8H PO
     Route: 048
     Dates: start: 20040121, end: 20040211
  4. PROPYLTHIOURACILE [Suspect]
  5. LEVOTHYROXINE SODIUM [Concomitant]

REACTIONS (23)
  - BLOOD ALKALINE PHOSPHATASE INCREASED [None]
  - BLOOD CREATININE INCREASED [None]
  - BREECH PRESENTATION [None]
  - CAESAREAN SECTION [None]
  - CERVIX DISORDER [None]
  - COMPLICATIONS OF MATERNAL EXPOSURE TO THERAPEUTIC DRUGS [None]
  - FACIAL DYSMORPHISM [None]
  - FALLOT'S TETRALOGY [None]
  - FOETAL DISTRESS SYNDROME [None]
  - HAEMOGLOBIN DECREASED [None]
  - HYPERTHYROIDISM [None]
  - HYPOTHYROIDISM [None]
  - HYPOTONIA [None]
  - MARKEDLY REDUCED DIETARY INTAKE [None]
  - MATERNAL DRUGS AFFECTING FOETUS [None]
  - MECONIUM IN AMNIOTIC FLUID [None]
  - NASAL DISORDER [None]
  - NEONATAL DISORDER [None]
  - NEONATAL THYROTOXICOSIS [None]
  - PREMATURE BABY [None]
  - PROTHROMBIN LEVEL DECREASED [None]
  - RECTAL HAEMORRHAGE [None]
  - TALIPES [None]
